FAERS Safety Report 16310955 (Version 3)
Quarter: 2019Q3

REPORT INFORMATION
  Report Type: Spontaneous
  Country: JP (occurrence: JP)
  Receive Date: 20190514
  Receipt Date: 20190724
  Transmission Date: 20191004
  Serious: No
  Sender: FDA-Public Use
  Company Number: JP-JNJFOC-20190514677

PATIENT

DRUGS (1)
  1. CONCERTA [Suspect]
     Active Substance: METHYLPHENIDATE HYDROCHLORIDE
     Indication: PRODUCT USED FOR UNKNOWN INDICATION
     Route: 048

REACTIONS (1)
  - Adverse event [Unknown]
